FAERS Safety Report 10090197 (Version 1)
Quarter: 2014Q2

REPORT INFORMATION
  Report Type: Spontaneous
  Country: BR (occurrence: BR)
  Receive Date: 20140421
  Receipt Date: 20140421
  Transmission Date: 20141212
  Serious: Yes (Other)
  Sender: FDA-Public Use
  Company Number: BR-GLAXOSMITHKLINE-A1070014A

PATIENT
  Age: 15 Year
  Sex: Male

DRUGS (1)
  1. AVAMYS [Suspect]
     Indication: RHINITIS
     Dosage: 27.5MCG UNKNOWN
     Route: 045
     Dates: start: 20140201

REACTIONS (2)
  - Glaucoma [Unknown]
  - Visual impairment [Unknown]
